FAERS Safety Report 25451481 (Version 1)
Quarter: 2025Q2

REPORT INFORMATION
  Report Type: Report from Study
  Country: US (occurrence: US)
  Receive Date: 20250618
  Receipt Date: 20250618
  Transmission Date: 20250716
  Serious: Yes (Other)
  Sender: ABBVIE
  Company Number: US-ABBVIE-6328658

PATIENT
  Age: 64 Year
  Sex: Female

DRUGS (1)
  1. QULIPTA [Suspect]
     Active Substance: ATOGEPANT
     Indication: Product used for unknown indication
     Route: 048
     Dates: start: 202502

REACTIONS (2)
  - Spinal operation [Recovering/Resolving]
  - Central nervous system lesion [Unknown]

NARRATIVE: CASE EVENT DATE: 20250101
